FAERS Safety Report 20330447 (Version 2)
Quarter: 2022Q1

REPORT INFORMATION
  Report Type: Spontaneous
  Country: US (occurrence: US)
  Receive Date: 20220113
  Receipt Date: 20220114
  Transmission Date: 20220423
  Serious: Yes (Life-Threatening, Other)
  Sender: FDA-Public Use
  Company Number: US-NOVARTISPH-NVSC2022US004862

PATIENT
  Sex: Male

DRUGS (1)
  1. ENTRESTO [Suspect]
     Active Substance: SACUBITRIL\VALSARTAN
     Indication: Product used for unknown indication
     Dosage: UNK
     Route: 065

REACTIONS (12)
  - Near death experience [Unknown]
  - Loss of consciousness [Recovered/Resolved]
  - Cerebral haemorrhage [Unknown]
  - Cardiac failure congestive [Unknown]
  - Myocardial infarction [Unknown]
  - Cerebrovascular accident [Unknown]
  - Diabetes mellitus [Unknown]
  - Paralysis [Not Recovered/Not Resolved]
  - Head injury [Unknown]
  - Drug interaction [Unknown]
  - Fall [Unknown]
  - Ejection fraction decreased [Unknown]
